FAERS Safety Report 8326945-8 (Version None)
Quarter: 2012Q2

REPORT INFORMATION
  Report Type: 
  Country: None (occurrence: None)
  Receive Date: 20120501
  Receipt Date: 20110921
  Transmission Date: 20120825
  Serious: Yes (Other)
  Sender: FDA-Public Use
  Company Number: US-SANOFI-AVENTIS-2011SA061988

PATIENT
  Age: 53 Year
  Sex: Female

DRUGS (3)
  1. APIDRA [Suspect]
     Dosage: SLIDING SCALE 3X A DAY
  2. SOLOSTAR [Suspect]
  3. INSULIN [Suspect]

REACTIONS (2)
  - HYPOGLYCAEMIA [None]
  - BLOOD GLUCOSE INCREASED [None]
